FAERS Safety Report 9999329 (Version 1)
Quarter: 2014Q1

REPORT INFORMATION
  Report Type: Spontaneous
  Country: US (occurrence: None)
  Receive Date: 20140311
  Receipt Date: 20140311
  Transmission Date: 20141002
  Serious: Yes (Hospitalization)
  Sender: FDA-Public Use
  Company Number: None

PATIENT
  Age: 62 Year
  Sex: Male
  Weight: 92.99 kg

DRUGS (1)
  1. ANDROGEL [Suspect]
     Indication: BLOOD TESTOSTERONE DECREASED
     Dosage: 2 PUMPS EA. ARM  ONCE DAILY  APPLIED TO A SURFACE, USUALLY THE SKIN
     Dates: start: 20080601, end: 20111123

REACTIONS (2)
  - Pulmonary embolism [None]
  - Deep vein thrombosis [None]
